FAERS Safety Report 14609175 (Version 1)
Quarter: 2018Q1

REPORT INFORMATION
  Report Type: Spontaneous
  Country: US (occurrence: US)
  Receive Date: 20180307
  Receipt Date: 20180307
  Transmission Date: 20180509
  Serious: No
  Sender: FDA-Public Use
  Company Number: US-ABBVIE-17P-163-1972097-00

PATIENT
  Sex: Female

DRUGS (1)
  1. ANDROGEL [Suspect]
     Active Substance: TESTOSTERONE
     Indication: EXPOSURE VIA PARTNER
     Route: 061
     Dates: start: 2012, end: 2014

REACTIONS (3)
  - Alopecia [Not Recovered/Not Resolved]
  - Blood testosterone increased [Not Recovered/Not Resolved]
  - Exposure via partner [Not Recovered/Not Resolved]

NARRATIVE: CASE EVENT DATE: 2017
